FAERS Safety Report 8975056 (Version 3)
Quarter: 2013Q1

REPORT INFORMATION
  Report Type: Spontaneous
  Country: FR (occurrence: FR)
  Receive Date: 20121220
  Receipt Date: 20130308
  Transmission Date: 20140127
  Serious: Yes (Hospitalization)
  Sender: FDA-Public Use
  Company Number: FR-SANOFI-AVENTIS-2012SA091864

PATIENT
  Age: 84 Year
  Sex: Male

DRUGS (14)
  1. LANTUS [Suspect]
     Indication: TYPE 2 DIABETES MELLITUS
     Route: 058
  2. NOVORAPID [Suspect]
     Indication: TYPE 2 DIABETES MELLITUS
     Dosage: DOSE: 12 IU MORNING, 8 IU MIDDAY AND 6 IU EVENING
     Route: 058
  3. SPIRIVA [Concomitant]
     Indication: CHRONIC OBSTRUCTIVE PULMONARY DISEASE
     Dosage: 1 UNIT
     Route: 055
  4. PREVISCAN [Concomitant]
     Dosage: STRENGTH: 20 MG
     Route: 048
     Dates: end: 20121110
  5. AMIODARONE [Concomitant]
     Indication: ATRIOVENTRICULAR BLOCK COMPLETE
     Route: 048
  6. FUROSEMIDE [Concomitant]
     Indication: HYPERTENSION
     Route: 048
  7. DIFFU K [Concomitant]
     Route: 048
  8. PARACETAMOL [Concomitant]
     Indication: PAIN
     Route: 048
     Dates: end: 20121111
  9. FERROUS SULFATE [Concomitant]
     Route: 048
  10. SERETIDE [Concomitant]
     Indication: CHRONIC OBSTRUCTIVE PULMONARY DISEASE
     Dosage: 250/25 MCG/DOSE
     Route: 055
  11. VENTOLINE [Concomitant]
     Indication: CHRONIC OBSTRUCTIVE PULMONARY DISEASE
     Route: 055
  12. ATORVASTATIN [Concomitant]
     Indication: DYSLIPIDAEMIA
     Route: 048
  13. RAMIPRIL [Concomitant]
     Indication: HYPERTENSION
     Route: 048
  14. NEBIVOLOL [Concomitant]
     Indication: HYPERTENSION
     Route: 048

REACTIONS (4)
  - Fall [Unknown]
  - Femur fracture [Recovering/Resolving]
  - Hypoglycaemia [Recovered/Resolved]
  - Loss of consciousness [Recovered/Resolved]
